FAERS Safety Report 21259667 (Version 1)
Quarter: 2022Q3

REPORT INFORMATION
  Report Type: Spontaneous
  Country: US (occurrence: None)
  Receive Date: 20220825
  Receipt Date: 20220825
  Transmission Date: 20221026
  Serious: No
  Sender: FDA-Public Use
  Company Number: None

PATIENT
  Age: 59 Year
  Sex: Male

DRUGS (1)
  1. LENALIDOMIDE [Suspect]
     Active Substance: LENALIDOMIDE
     Indication: Plasma cell myeloma
     Dosage: 10MG DAILY BY MOUTH
     Route: 048
     Dates: start: 20220802

REACTIONS (5)
  - Lethargy [None]
  - Fatigue [None]
  - Thinking abnormal [None]
  - Decreased appetite [None]
  - Product substitution issue [None]

NARRATIVE: CASE EVENT DATE: 20220802
